FAERS Safety Report 13824256 (Version 2)
Quarter: 2017Q3

REPORT INFORMATION
  Report Type: Report from Study
  Country: CA (occurrence: CA)
  Receive Date: 20170802
  Receipt Date: 20170817
  Transmission Date: 20171127
  Serious: Yes (Hospitalization, Other)
  Sender: FDA-Public Use
  Company Number: CA-AMGEN-CANSL2017106152

PATIENT
  Age: 84 Year
  Sex: Female

DRUGS (4)
  1. IRON [Concomitant]
     Active Substance: IRON
  2. METAMUCIL [Concomitant]
     Active Substance: PLANTAGO SEED
     Dosage: 2 UNK, UNK
  3. APO-CLOBAZAM [Concomitant]
     Active Substance: CLOBAZAM
     Indication: SEIZURE
  4. PROLIA [Suspect]
     Active Substance: DENOSUMAB
     Indication: PRODUCT USED FOR UNKNOWN INDICATION
     Dosage: UNK
     Route: 065
     Dates: start: 20170130

REACTIONS (3)
  - Pollakiuria [Unknown]
  - Hepatic neoplasm [Unknown]
  - Colon cancer [Unknown]

NARRATIVE: CASE EVENT DATE: 2017
